FAERS Safety Report 23143242 (Version 1)
Quarter: 2023Q4

REPORT INFORMATION
  Report Type: Spontaneous
  Country: US (occurrence: None)
  Receive Date: 20231103
  Receipt Date: 20231103
  Transmission Date: 20240110
  Serious: Yes (unspecified)
  Sender: FDA-Public Use
  Company Number: None

PATIENT
  Age: 59 Year
  Sex: Female
  Weight: 81 kg

DRUGS (5)
  1. COMPLEMENTARY SUPPLEMENT, OTHER [Suspect]
     Active Substance: COMPLEMENTARY SUPPLEMENT, OTHER
     Indication: Sinusitis
     Dates: start: 20230808, end: 20230812
  2. UNSPECIFIED INGREDIENT [Concomitant]
     Active Substance: UNSPECIFIED INGREDIENT
  3. PROBIOTICS NOS [Concomitant]
     Active Substance: PROBIOTICS NOS
  4. VITAMINS [Concomitant]
     Active Substance: VITAMINS
  5. mineral supplement [Concomitant]

REACTIONS (2)
  - Condition aggravated [None]
  - Therapy cessation [None]

NARRATIVE: CASE EVENT DATE: 20230808
